FAERS Safety Report 5489500-3 (Version None)
Quarter: 2007Q4

REPORT INFORMATION
  Report Type: 
  Country: None (occurrence: None)
  Receive Date: 20071018
  Receipt Date: 20071005
  Transmission Date: 20080405
  Serious: Yes (Life-Threatening, Hospitalization)
  Sender: FDA-Public Use
  Company Number: JP-AMGEN-US213778

PATIENT
  Sex: Female
  Weight: 52 kg

DRUGS (10)
  1. ENBREL [Suspect]
     Indication: RHEUMATOID ARTHRITIS
     Route: 058
     Dates: start: 20050519, end: 20070215
  2. ENBREL [Suspect]
     Route: 058
     Dates: start: 20070315
  3. RISEDRONATE SODIUM [Concomitant]
     Dosage: UNKNOWN
     Route: 048
  4. ALFAROL [Concomitant]
     Indication: OSTEOPOROSIS
     Route: 048
     Dates: start: 19990610
  5. FAMOTIDINE [Concomitant]
     Indication: GASTRITIS
     Route: 048
     Dates: start: 20041021
  6. PREDONINE [Concomitant]
     Indication: RHEUMATOID ARTHRITIS
     Dosage: UNKNOWN
     Route: 048
  7. LOXONIN [Concomitant]
     Indication: RHEUMATOID ARTHRITIS
     Dosage: 60 MG
     Route: 048
     Dates: start: 20041021
  8. SELBEX [Concomitant]
     Indication: GASTRITIS
     Route: 048
     Dates: start: 20041021
  9. ISCOTIN [Concomitant]
     Indication: LATENT TUBERCULOSIS
     Route: 048
     Dates: start: 20050428, end: 20050616
  10. ASPARA-CA [Concomitant]
     Indication: OSTEOPOROSIS
     Route: 048
     Dates: start: 19990610

REACTIONS (1)
  - SUBARACHNOID HAEMORRHAGE [None]
